FAERS Safety Report 4459679-0 (Version None)
Quarter: 2004Q3

REPORT INFORMATION
  Report Type: 
  Country: None (occurrence: None)
  Receive Date: 20040923
  Receipt Date: 20040923
  Transmission Date: 20050211
  Serious: Yes (Other)
  Sender: FDA-Public Use
  Company Number: None

PATIENT
  Age: 24 Year
  Sex: Female
  Weight: 68.9467 kg

DRUGS (2)
  1. VIOXX [Suspect]
     Indication: BACK PAIN
     Dosage: 50MG  DAY  ORAL
     Route: 048
     Dates: start: 20040823, end: 20040828
  2. VIOXX [Suspect]
     Indication: MUSCLE STRAIN
     Dosage: 50MG  DAY  ORAL
     Route: 048
     Dates: start: 20040823, end: 20040828

REACTIONS (3)
  - BLOOD PRESSURE INCREASED [None]
  - PALPITATIONS [None]
  - TACHYCARDIA [None]
